FAERS Safety Report 5851565-4 (Version None)
Quarter: 2008Q3

REPORT INFORMATION
  Report Type: 
  Country: None (occurrence: None)
  Receive Date: 20080820
  Receipt Date: 20080812
  Transmission Date: 20090109
  Serious: Yes (Life-Threatening, Hospitalization)
  Sender: FDA-Public Use
  Company Number: DE-BAXTER-2008BH008600

PATIENT
  Age: 43 Year
  Sex: Female

DRUGS (2)
  1. GAMMAGARD LIQUID [Suspect]
     Indication: IMMUNODEFICIENCY COMMON VARIABLE
     Route: 042
     Dates: start: 20080119, end: 20080123
  2. FLUCONAZOLE [Concomitant]
     Indication: PNEUMONIA
     Route: 065
     Dates: start: 20080118

REACTIONS (3)
  - BRAIN OEDEMA [None]
  - CONVULSION [None]
  - ENCEPHALOPATHY [None]
